FAERS Safety Report 25745646 (Version 1)
Quarter: 2025Q3

REPORT INFORMATION
  Report Type: Spontaneous
  Country: TW (occurrence: TW)
  Receive Date: 20250901
  Receipt Date: 20250901
  Transmission Date: 20251021
  Serious: Yes (Other)
  Sender: ASTELLAS
  Company Number: TW-ASTELLAS-2025-AER-046820

PATIENT
  Age: 47 Year
  Sex: Female
  Weight: 66 kg

DRUGS (7)
  1. VYLOY [Suspect]
     Active Substance: ZOLBETUXIMAB-CLZB
     Indication: Gastric cancer stage IV
     Route: 065
     Dates: start: 2025
  2. VYLOY [Suspect]
     Active Substance: ZOLBETUXIMAB-CLZB
     Route: 065
     Dates: start: 20250723
  3. VYLOY [Suspect]
     Active Substance: ZOLBETUXIMAB-CLZB
     Route: 065
     Dates: start: 20250526
  4. FOLFOX4 [Concomitant]
     Indication: Gastric cancer stage IV
     Route: 065
     Dates: start: 20250526
  5. FOLFOX4 [Concomitant]
     Route: 065
     Dates: start: 20250723
  6. FOLFOX4 [Concomitant]
     Route: 065
     Dates: start: 20250417
  7. AMINO ACIDS\DEXTROSE\ELECTROLYTES NOS\SOYBEAN OIL [Concomitant]
     Active Substance: AMINO ACIDS\DEXTROSE\ELECTROLYTES NOS\SOYBEAN OIL
     Indication: Parenteral nutrition
     Route: 065

REACTIONS (3)
  - Cachexia [Unknown]
  - Microcytic anaemia [Unknown]
  - Iron deficiency anaemia [Unknown]

NARRATIVE: CASE EVENT DATE: 20250101
